FAERS Safety Report 18753714 (Version 1)
Quarter: 2021Q1

REPORT INFORMATION
  Report Type: Report from Study
  Country: None (occurrence: US)
  Receive Date: 20210118
  Receipt Date: 20210118
  Transmission Date: 20210419
  Serious: Yes (Other)
  Sender: FDA-Public Use
  Company Number: US-ABBVIE-21K-163-3732523-00

PATIENT
  Sex: Male

DRUGS (1)
  1. HUMIRA [Suspect]
     Active Substance: ADALIMUMAB
     Indication: COLITIS ULCERATIVE
     Route: 058
     Dates: end: 202011

REACTIONS (9)
  - Joint dislocation [Recovered/Resolved]
  - Hand fracture [Recovering/Resolving]
  - Facial bones fracture [Recovered/Resolved]
  - Scapula fracture [Recovering/Resolving]
  - Head injury [Recovering/Resolving]
  - Road traffic accident [Recovering/Resolving]
  - Memory impairment [Not Recovered/Not Resolved]
  - Ear injury [Recovered/Resolved]
  - Medical induction of coma [Recovered/Resolved]
